FAERS Safety Report 11550059 (Version 1)
Quarter: 2015Q3

REPORT INFORMATION
  Report Type: Spontaneous
  Country: US (occurrence: US)
  Receive Date: 20150903
  Receipt Date: 20150903
  Transmission Date: 20151125
  Serious: No
  Sender: FDA-Public Use
  Company Number: US-ELI_LILLY_AND_COMPANY-US201301006732

PATIENT
  Sex: Male

DRUGS (4)
  1. HUMALOG [Suspect]
     Active Substance: INSULIN LISPRO
     Indication: TYPE 2 DIABETES MELLITUS
     Dosage: UNK UNK, PRN
  2. HUMULIN 70/30 [Concomitant]
     Active Substance: INSULIN HUMAN
     Indication: TYPE 2 DIABETES MELLITUS
     Dosage: 35 U, EACH MORNING
  3. LANTUS [Concomitant]
     Active Substance: INSULIN GLARGINE
  4. HUMULIN 70/30 [Concomitant]
     Active Substance: INSULIN HUMAN
     Dosage: 25 U, EACH EVENING

REACTIONS (1)
  - Underdose [Unknown]
